FAERS Safety Report 4850337-7 (Version None)
Quarter: 2005Q4

REPORT INFORMATION
  Report Type: 
  Country: None (occurrence: None)
  Receive Date: 20051207
  Receipt Date: 20051207
  Transmission Date: 20060501
  Serious: Yes (Hospitalization)
  Sender: FDA-Public Use
  Company Number: None

PATIENT
  Age: 57 Year
  Sex: Female

DRUGS (2)
  1. GAMMA HYDROXYBUTYRATE [Suspect]
     Indication: NARCOLEPSY
     Dosage: 4.5 G PO QPM
     Route: 048
  2. PROVIGIL [Concomitant]

REACTIONS (6)
  - CONDITION AGGRAVATED [None]
  - DEPRESSION [None]
  - INCREASED APPETITE [None]
  - INSOMNIA [None]
  - SUICIDAL IDEATION [None]
  - WEIGHT INCREASED [None]
